FAERS Safety Report 19509403 (Version 2)
Quarter: 2021Q3

REPORT INFORMATION
  Report Type: Spontaneous
  Country: DE (occurrence: DE)
  Receive Date: 20210708
  Receipt Date: 20210804
  Transmission Date: 20211014
  Serious: Yes (Other)
  Sender: FDA-Public Use
  Company Number: DE-MYLANLABS-2021M1039344

PATIENT
  Age: 54 Year
  Sex: Male
  Weight: 90 kg

DRUGS (19)
  1. IBUFLAM                            /00109201/ [Concomitant]
     Active Substance: IBUPROFEN
     Dosage: UNK
  2. VALSARTAN DURA 320 MG FILMTABLETTEN [Suspect]
     Active Substance: VALSARTAN
     Indication: PRODUCT USED FOR UNKNOWN INDICATION
     Dosage: UNK, AM
     Route: 048
     Dates: start: 20141121
  3. VALSARTAN STADA [Suspect]
     Active Substance: VALSARTAN
     Indication: PRODUCT USED FOR UNKNOWN INDICATION
     Dosage: UNK
  4. NOVAMINSULFON LICHTENSTEIN [Concomitant]
     Active Substance: METAMIZOLE SODIUM
     Dosage: UNK
  5. VALSACOR COMP [Concomitant]
     Active Substance: HYDROCHLOROTHIAZIDE\VALSARTAN
     Dosage: UNK
  6. VALSARTAN HENNIG [Suspect]
     Active Substance: VALSARTAN
     Indication: PRODUCT USED FOR UNKNOWN INDICATION
     Dosage: UNK
  7. SALBUHEXAL [Concomitant]
     Active Substance: ALBUTEROL
     Dosage: UNK
  8. PIROBETA [Concomitant]
     Dosage: UNK
  9. TRIAM LICHTENSTEIN [Concomitant]
     Dosage: UNK
  10. VALSARTAN TAD [Suspect]
     Active Substance: VALSARTAN
     Indication: PRODUCT USED FOR UNKNOWN INDICATION
     Dosage: UNK
  11. VALSARTAN HEXAL [Suspect]
     Active Substance: VALSARTAN
     Indication: PRODUCT USED FOR UNKNOWN INDICATION
     Dosage: UNK
  12. BUDES [Concomitant]
     Active Substance: BUDESONIDE
     Dosage: UNK
  13. TETRAZEPAM [Concomitant]
     Active Substance: TETRAZEPAM
     Dosage: UNK
  14. VALSARTAN HEUMANN [Suspect]
     Active Substance: VALSARTAN
     Indication: PRODUCT USED FOR UNKNOWN INDICATION
     Dosage: UNK
  15. LIPOTALON [Concomitant]
     Active Substance: DEXAMETHASONE PALMITATE
     Dosage: UNK
  16. MELOXICAM STADA [Concomitant]
     Dosage: UNK
  17. IBUPROFEN                          /00109205/ [Concomitant]
     Active Substance: IBUPROFEN
     Dosage: UNK
  18. DUORESP [Concomitant]
     Active Substance: BUDESONIDE\FORMOTEROL
     Dosage: UNK
  19. PREDNISOLON STADA [Concomitant]
     Active Substance: PREDNISOLONE
     Dosage: UNK

REACTIONS (3)
  - Anxiety disorder [Unknown]
  - Mental impairment [Unknown]
  - Quality of life decreased [Unknown]
